FAERS Safety Report 25489532 (Version 1)
Quarter: 2025Q2

REPORT INFORMATION
  Report Type: Spontaneous
  Country: CH (occurrence: CH)
  Receive Date: 20250627
  Receipt Date: 20250627
  Transmission Date: 20250716
  Serious: Yes (Hospitalization)
  Sender: MYLAN
  Company Number: None

PATIENT
  Sex: Male
  Weight: 1.065 kg

DRUGS (12)
  1. ISOPTIN [Suspect]
     Active Substance: VERAPAMIL HYDROCHLORIDE
     Indication: Product used for unknown indication
     Dosage: 80 MILLIGRAM, BID (2X/DAY)
     Dates: start: 20241202
  2. ENALAPRIL [Suspect]
     Active Substance: ENALAPRIL
     Indication: Product used for unknown indication
     Dosage: 20 MILLIGRAM, BID (2X/DAY)
     Dates: end: 20240731
  3. ALDOMET [Suspect]
     Active Substance: METHYLDOPA
     Indication: Product used for unknown indication
     Dosage: 250 MILLIGRAM, AM (IN THE MORNING)
     Dates: end: 20241202
  4. ALDOMET [Suspect]
     Active Substance: METHYLDOPA
  5. ALDOMET [Suspect]
     Active Substance: METHYLDOPA
     Dosage: 500 MILLIGRAM, Q8H (3X/DAY)
     Dates: start: 20241202
  6. TRANDATE [Suspect]
     Active Substance: LABETALOL HYDROCHLORIDE
     Indication: Product used for unknown indication
     Dosage: 200 MILLIGRAM, BID (2X/DAY)
     Dates: start: 202407, end: 20241202
  7. TRANDATE [Suspect]
     Active Substance: LABETALOL HYDROCHLORIDE
     Dosage: 300 MILLIGRAM, Q8H (3X/DAY)
     Dates: start: 20241202
  8. NIFEDIPINE [Suspect]
     Active Substance: NIFEDIPINE
     Indication: Product used for unknown indication
     Dosage: 20 MILLIGRAM, Q8H
     Dates: start: 20241202
  9. DILTIAZEM [Suspect]
     Active Substance: DILTIAZEM
     Indication: Product used for unknown indication
     Dosage: 180 MILLIGRAM, BID (2X/DAY)
  10. ASPIRIN [Suspect]
     Active Substance: ASPIRIN
     Indication: Product used for unknown indication
     Dosage: 150 MILLIGRAM, PM (IN THE EVENING)
     Dates: start: 2024
  11. Anti-d globulin [Concomitant]
  12. FOLIC ACID\IRON\MINERALS\VITAMINS [Concomitant]
     Active Substance: FOLIC ACID\IRON\MINERALS\VITAMINS

REACTIONS (2)
  - Premature baby [Recovered/Resolved]
  - Exposure during pregnancy [Recovered/Resolved]

NARRATIVE: CASE EVENT DATE: 20240601
